FAERS Safety Report 4504970-2 (Version None)
Quarter: 2004Q4

REPORT INFORMATION
  Report Type: 
  Country: None (occurrence: None)
  Receive Date: 20041015
  Receipt Date: 20031217
  Transmission Date: 20050328
  Serious: Yes (Other)
  Sender: FDA-Public Use
  Company Number: 2003125334

PATIENT
  Sex: Male
  Weight: 95.2554 kg

DRUGS (4)
  1. NEURONTIN [Suspect]
     Indication: DEPRESSION
     Dosage: 1200 MG (600, BID), ORAL
     Route: 048
  2. MIRTAZAPINE [Concomitant]
  3. TRAZODONE HCL [Concomitant]
  4. OLANZAPINE [Concomitant]

REACTIONS (2)
  - FEELING ABNORMAL [None]
  - SUICIDAL IDEATION [None]
